FAERS Safety Report 4340483-9 (Version None)
Quarter: 2004Q2

REPORT INFORMATION
  Report Type: 
  Country: None (occurrence: None)
  Receive Date: 20040414
  Receipt Date: 20040406
  Transmission Date: 20050107
  Serious: Yes (Hospitalization)
  Sender: FDA-Public Use
  Company Number: 200410862GDS

PATIENT
  Age: 46 Year
  Sex: Female

DRUGS (7)
  1. ADALAT CC [Suspect]
     Dosage: 20 MG, TOTAL DAILY, ORAL; SEE IMAGE
     Route: 048
  2. ISORSORBIDE DINITRATE [Concomitant]
  3. DILTIAZEM [Concomitant]
  4. AMLODIPINE [Concomitant]
  5. NICORANDIL [Concomitant]
  6. ISOSORBIDE MONONITRATE [Concomitant]
  7. PREDNISOLONE [Concomitant]

REACTIONS (7)
  - ANGINA PECTORIS [None]
  - CORONARY ARTERY ATHEROSCLEROSIS [None]
  - CORONARY ARTERY STENOSIS [None]
  - ELECTROCARDIOGRAM ST SEGMENT DEPRESSION [None]
  - SYNCOPE [None]
  - URINARY INCONTINENCE [None]
  - VASOSPASM [None]
